FAERS Safety Report 24200511 (Version 1)
Quarter: 2024Q3

REPORT INFORMATION
  Report Type: Spontaneous
  Country: US (occurrence: None)
  Receive Date: 20240809
  Receipt Date: 20240809
  Transmission Date: 20241017
  Serious: Yes (Hospitalization)
  Sender: Public
  Company Number: None

PATIENT
  Age: 84 Year
  Sex: Female
  Weight: 57.61 kg

DRUGS (12)
  1. ALENDRONATE SODIUM [Suspect]
     Active Substance: ALENDRONATE SODIUM
     Indication: Osteopenia
     Dosage: 1 PILL ONCE A WEEK TAKEN BY MOUTH
     Route: 048
  2. OMEPRAZOLE [Concomitant]
     Active Substance: OMEPRAZOLE
  3. LIPIITOR [Concomitant]
  4. MYBETRIG [Concomitant]
  5. PREMARIN [Concomitant]
     Active Substance: ESTROGENS, CONJUGATED
  6. METHO TREXITE [Concomitant]
  7. FOLIC ACID [Concomitant]
     Active Substance: FOLIC ACID
  8. VITAMIN D3 [Concomitant]
     Active Substance: CHOLECALCIFEROL
  9. BIOTIN [Concomitant]
     Active Substance: BIOTIN
  10. CALCIUM\CHOLECALCIFEROL [Concomitant]
     Active Substance: CALCIUM\CHOLECALCIFEROL
  11. WOMAN^S PROBIOTIC [Concomitant]
  12. GLUCOSAMINE SULFATE [Concomitant]
     Active Substance: GLUCOSAMINE SULFATE

REACTIONS (6)
  - Femur fracture [None]
  - Pathological fracture [None]
  - Bone demineralisation [None]
  - Adverse drug reaction [None]
  - Therapy interrupted [None]
  - Bone density decreased [None]

NARRATIVE: CASE EVENT DATE: 20240529
